FAERS Safety Report 4570294-0 (Version None)
Quarter: 2005Q1

REPORT INFORMATION
  Report Type: 
  Country: None (occurrence: None)
  Receive Date: 20050202
  Receipt Date: 20050120
  Transmission Date: 20050727
  Serious: Yes (Disabling, Other)
  Sender: FDA-Public Use
  Company Number: 2004075463

PATIENT
  Age: 33 Year
  Sex: Female
  Weight: 42.5 kg

DRUGS (7)
  1. PREDNISONE [Suspect]
     Indication: RENAL FAILURE
     Dosage: 2.5 MG (2.5 MG 1 IN 1 D) ORAL
     Route: 048
  2. FUROSEMIDE                       (FUROSEMIDE) [Concomitant]
  3. SEVELAMER                    (SEVELAMER) [Concomitant]
  4. CHLORPHENIRAMINE                         (CLORPHENIRAMINE) [Concomitant]
  5. FOLIC ACID [Concomitant]
  6. KETOVITE                           (VITAMINS NOS) [Concomitant]
  7. ACETYLSALYCYLIC ACID                  (ACETYLSALICYLIC ACID ) [Concomitant]

REACTIONS (4)
  - ASEPTIC NECROSIS BONE [None]
  - CONTUSION [None]
  - OOPHORECTOMY [None]
  - OVARIAN CYSTECTOMY [None]
